FAERS Safety Report 20219565 (Version 2)
Quarter: 2022Q1

REPORT INFORMATION
  Report Type: Spontaneous
  Country: US (occurrence: US)
  Receive Date: 20211222
  Receipt Date: 20220112
  Transmission Date: 20220423
  Serious: Yes (Hospitalization)
  Sender: FDA-Public Use
  Company Number: US-PFIZER INC-202101368666

PATIENT
  Age: 63 Year
  Sex: Male

DRUGS (1)
  1. VFEND [Suspect]
     Active Substance: VORICONAZOLE
     Indication: Fungal infection
     Dosage: 250 MG, 2X/DAY (50 MG AND 200 MG TABLETS, TWICE DAILY)
     Route: 048

REACTIONS (2)
  - Lung transplant [Unknown]
  - Off label use [Unknown]
